FAERS Safety Report 5919470-2 (Version None)
Quarter: 2008Q4

REPORT INFORMATION
  Report Type: 
  Country: None (occurrence: None)
  Receive Date: 20081014
  Receipt Date: 20081014
  Transmission Date: 20090506
  Serious: No
  Sender: FDA-Public Use
  Company Number: None

PATIENT
  Age: 63 Year
  Sex: Female
  Weight: 89.8122 kg

DRUGS (1)
  1. LIPITOR [Suspect]

REACTIONS (6)
  - BLOOD MAGNESIUM DECREASED [None]
  - BLOOD POTASSIUM DECREASED [None]
  - DYSSTASIA [None]
  - MUSCLE SPASMS [None]
  - MUSCULAR WEAKNESS [None]
  - OEDEMA PERIPHERAL [None]
